FAERS Safety Report 9604361 (Version 41)
Quarter: 2022Q4

REPORT INFORMATION
  Report Type: Report from Study
  Country: CA (occurrence: CA)
  Receive Date: 20131008
  Receipt Date: 20221229
  Transmission Date: 20230113
  Serious: Yes (Hospitalization, Other)
  Sender: FDA-Public Use
  Company Number: PHHY2013CA111581

PATIENT
  Age: 84 Year
  Sex: Female

DRUGS (4)
  1. SANDOSTATIN LAR DEPOT [Suspect]
     Active Substance: OCTREOTIDE ACETATE
     Indication: Carcinoid tumour
     Dosage: 30 MG, QMO (FORMULATION: VIAL)
     Route: 030
     Dates: start: 20051006
  2. SANDOSTATIN LAR DEPOT [Suspect]
     Active Substance: OCTREOTIDE ACETATE
     Dosage: 30 MG, Q4W (EVERY 4 WEEKS)
     Route: 030
     Dates: start: 20110706
  3. SANDOSTATIN LAR DEPOT [Suspect]
     Active Substance: OCTREOTIDE ACETATE
     Dosage: 30 MG, Q3W
     Route: 030
     Dates: start: 202209
  4. SANDOSTATIN LAR DEPOT [Suspect]
     Active Substance: OCTREOTIDE ACETATE
     Dosage: 60 MG, Q4W (EVERY 4 WEEKS)
     Route: 030
     Dates: start: 20221213

REACTIONS (11)
  - Fall [Unknown]
  - Hip fracture [Unknown]
  - Arrhythmia [Unknown]
  - Blood pressure increased [Unknown]
  - Body temperature decreased [Unknown]
  - Heart rate decreased [Unknown]
  - Respiratory rate increased [Unknown]
  - Faecal volume increased [Unknown]
  - Anal incontinence [Unknown]
  - Inappropriate schedule of product administration [Unknown]
  - Incorrect dose administered [Unknown]

NARRATIVE: CASE EVENT DATE: 20140101
